FAERS Safety Report 15622300 (Version 2)
Quarter: 2018Q4

REPORT INFORMATION
  Report Type: Spontaneous
  Country: US (occurrence: US)
  Receive Date: 20181115
  Receipt Date: 20181228
  Transmission Date: 20190205
  Serious: Yes (Other)
  Sender: FDA-Public Use
  Company Number: US-MYLANLABS-2018M1087043

PATIENT
  Sex: Female

DRUGS (1)
  1. NORETHINDRONE ACETATE AND ETHINYL ESTRADIOL [Suspect]
     Active Substance: ETHINYL ESTRADIOL\NORETHINDRONE ACETATE
     Indication: PRODUCT USED FOR UNKNOWN INDICATION
     Dosage: UNK
     Dates: end: 2018

REACTIONS (15)
  - Lethargy [Unknown]
  - Weight increased [Unknown]
  - Suicidal ideation [Recovering/Resolving]
  - Chest pain [Unknown]
  - Emotional disorder [Recovering/Resolving]
  - Memory impairment [Unknown]
  - Insomnia [Recovering/Resolving]
  - Thinking abnormal [Unknown]
  - Disturbance in attention [Unknown]
  - Mood swings [Unknown]
  - Hypersensitivity [Unknown]
  - Breast swelling [Unknown]
  - Fatigue [Unknown]
  - General physical condition abnormal [Unknown]
  - Menstruation irregular [Recovered/Resolved]
